FAERS Safety Report 7673780-X (Version None)
Quarter: 2011Q3

REPORT INFORMATION
  Report Type: 
  Country: None (occurrence: None)
  Receive Date: 20110808
  Receipt Date: 20110725
  Transmission Date: 20111222
  Serious: Yes (Hospitalization)
  Sender: FDA-Public Use
  Company Number: DSU-2011-05494

PATIENT
  Age: 77 Year
  Sex: Female

DRUGS (12)
  1. HYDROCHLOROTHIAZIDE [Suspect]
     Indication: PRODUCT USED FOR UNKNOWN INDICATION
  2. FIBRIC ACID (FIBRATES) [Concomitant]
  3. SAXAGLIPTIN (SAXAGLIPTIN) [Suspect]
     Indication: TYPE 2 DIABETES MELLITUS
     Dates: start: 20100927
  4. LISINOPRIL [Suspect]
     Indication: PRODUCT USED FOR UNKNOWN INDICATION
  5. PLACEBO [Suspect]
     Indication: TYPE 2 DIABETES MELLITUS
     Dates: start: 20071203
  6. STATIN (HMG COA REDUCTASE INHIBITORS) [Concomitant]
  7. BENICAR [Suspect]
     Indication: PRODUCT USED FOR UNKNOWN INDICATION
     Dosage: PER ORAL
     Route: 048
  8. VERAPAMIL [Suspect]
     Indication: PRODUCT USED FOR UNKNOWN INDICATION
  9. CALCIUM ANTAGONIST (DIHYDROPYRIDINE DERIVATIVES) [Concomitant]
  10. METFORMIN HCL [Suspect]
     Indication: TYPE 2 DIABETES MELLITUS
     Dosage: 500 MG
  11. ASPIRIN [Concomitant]
  12. ANGIOTENSIN RECEPTOR BLOCKER (ACE INHIBITOR NOS) [Concomitant]

REACTIONS (7)
  - DIARRHOEA [None]
  - VOMITING [None]
  - DECREASED APPETITE [None]
  - ASTHENIA [None]
  - NAUSEA [None]
  - INCORRECT DOSE ADMINISTERED [None]
  - HYPOTENSION [None]
